FAERS Safety Report 4552119-2 (Version None)
Quarter: 2004Q4

REPORT INFORMATION
  Report Type: 
  Country: None (occurrence: None)
  Receive Date: 20041217
  Receipt Date: 20041014
  Transmission Date: 20050328
  Serious: No
  Sender: FDA-Public Use
  Company Number: 2004-BP-10116BP

PATIENT
  Age: 77 Year
  Sex: Female
  Weight: 77.6 kg

DRUGS (9)
  1. SPIRIVA [Suspect]
     Indication: CHRONIC OBSTRUCTIVE AIRWAYS DISEASE
     Dosage: 18 MCG (18 MCG), IH
     Route: 055
  2. SPIRIVA [Suspect]
  3. ADVAIR (SERETIDE MITE) [Concomitant]
  4. SYNTHROID [Concomitant]
  5. PLAVIX [Concomitant]
  6. NEXIUM [Concomitant]
  7. BEXTRA [Concomitant]
  8. TOPROL-XL [Concomitant]
  9. FEMORA [Concomitant]

REACTIONS (3)
  - AGEUSIA [None]
  - BREATH SOUNDS DECREASED [None]
  - DYSPNOEA EXACERBATED [None]
